FAERS Safety Report 8183314-1 (Version None)
Quarter: 2012Q1

REPORT INFORMATION
  Report Type: 
  Country: None (occurrence: None)
  Receive Date: 20120201
  Receipt Date: 20110623
  Transmission Date: 20120608
  Serious: Yes (Other)
  Sender: FDA-Public Use
  Company Number: 279456USA

PATIENT
  Age: 44 Year
  Sex: Male

DRUGS (9)
  1. ACETYLSALICYLIC ACID SRT [Concomitant]
  2. LISINOPRIL [Concomitant]
  3. PROPACET 100 [Suspect]
  4. FENOFIBRATE [Concomitant]
  5. EZETIMIBE [Concomitant]
  6. PROPOXYPHENE NAPSYLATE [Suspect]
     Indication: NEUROPATHY PERIPHERAL
     Dosage: (AS REQUIRED)
     Dates: start: 20080101, end: 20101001
  7. CLOPIDOGREL [Concomitant]
  8. METOPROLOL SUCCINATE [Concomitant]
  9. PRAVASTATIN [Concomitant]

REACTIONS (3)
  - MYOCARDIAL INFARCTION [None]
  - CORONARY ARTERY OCCLUSION [None]
  - PALPITATIONS [None]
